FAERS Safety Report 20439733 (Version 1)
Quarter: 2022Q1

REPORT INFORMATION
  Report Type: Spontaneous
  Country: US (occurrence: None)
  Receive Date: 20220204
  Receipt Date: 20220204
  Transmission Date: 20220423
  Serious: No
  Sender: FDA-Public Use
  Company Number: None

PATIENT
  Age: 50 Year
  Sex: Female
  Weight: 58.5 kg

DRUGS (5)
  1. ESCITALOPRAM [Suspect]
     Active Substance: ESCITALOPRAM OXALATE
     Indication: Anxiety
     Dates: start: 20190515, end: 20210331
  2. ESCITALOPRAM [Suspect]
     Active Substance: ESCITALOPRAM OXALATE
     Indication: Depression
  3. SPIRONOLACTONE [Concomitant]
     Active Substance: SPIRONOLACTONE
  4. MELATONIN [Concomitant]
     Active Substance: MELATONIN
  5. One-a-Day women^s multi-vitamin [Concomitant]

REACTIONS (2)
  - Weight increased [None]
  - Product use complaint [None]

NARRATIVE: CASE EVENT DATE: 20210331
